FAERS Safety Report 17541617 (Version 5)
Quarter: 2022Q3

REPORT INFORMATION
  Report Type: Report from Study
  Country: GB (occurrence: GB)
  Receive Date: 20200313
  Receipt Date: 20220902
  Transmission Date: 20221026
  Serious: Yes (Hospitalization)
  Sender: FDA-Public Use
  Company Number: GB-ABBVIE-20P-167-3311153-00

PATIENT
  Age: 78 Year
  Sex: Male
  Weight: 78.6 kg

DRUGS (17)
  1. VENETOCLAX [Suspect]
     Active Substance: VENETOCLAX
     Indication: Plasma cell myeloma
     Dosage: CYCLE 1-8: 21 DAYS?CYCLE 9 AND BEYOND: 35 DAYS
     Route: 048
     Dates: start: 20170428, end: 20171011
  2. VENETOCLAX [Suspect]
     Active Substance: VENETOCLAX
     Dosage: CYCLE 1-8: 21 DAYS?CYCLE 9 AND BEYOND: 35 DAYS
     Route: 048
     Dates: start: 20171012, end: 20200305
  3. VENETOCLAX [Suspect]
     Active Substance: VENETOCLAX
     Dosage: CYCLE 1-8: 21 DAYS?CYCLE 9 AND BEYOND: 35 DAYS
     Route: 048
     Dates: start: 20200327
  4. BORTEZOMIB [Suspect]
     Active Substance: BORTEZOMIB
     Indication: Plasma cell myeloma
     Dosage: C1-8:D1,4,8+11,C=21D. C9+:D1,8,15+22, C=25D.
     Route: 058
     Dates: start: 20170428, end: 20200228
  5. BORTEZOMIB [Suspect]
     Active Substance: BORTEZOMIB
     Dosage: C1-8:D1,4,8+11,C=21D. C9+:D1,8,15+22, C=25D.
     Route: 058
     Dates: start: 20200925
  6. DEXAMETHASONE [Suspect]
     Active Substance: DEXAMETHASONE
     Indication: Plasma cell myeloma
     Dosage: C1- 8:D 1,2,4,5,8,9,11 + 12 OF 21D CYCLE. C9+:D1,2,8,9,15,16,22 + 23 OF 35D CYCLE
     Route: 048
     Dates: start: 20170428, end: 20190119
  7. DEXAMETHASONE [Suspect]
     Active Substance: DEXAMETHASONE
     Dosage: C9+:DAY 1, 2, 8, 9, 15, 16, 22 AND 23 OF 35D CYCLE
     Route: 048
     Dates: start: 20190222, end: 20191130
  8. DEXAMETHASONE [Suspect]
     Active Substance: DEXAMETHASONE
     Dosage: C9+:DAY 1, 2, 8, 9, 15, 16, 22 AND 23 OF 35D CYCLE
     Route: 048
     Dates: start: 20191213, end: 20200229
  9. DEXAMETHASONE [Suspect]
     Active Substance: DEXAMETHASONE
     Dosage: C9+:DAY 1, 2, 8, 9, 15, 16, 22 AND 23 OF 35D CYCLE
     Route: 048
     Dates: start: 20200327
  10. ACYCLOVIR [Concomitant]
     Active Substance: ACYCLOVIR
     Indication: Antiviral prophylaxis
     Route: 048
     Dates: start: 20170428
  11. COTRIMOXAZOLE [Concomitant]
     Active Substance: SULFAMETHOXAZOLE\TRIMETHOPRIM
     Indication: Antibiotic prophylaxis
     Route: 048
     Dates: start: 20170428, end: 20190328
  12. COTRIMOXAZOLE [Concomitant]
     Active Substance: SULFAMETHOXAZOLE\TRIMETHOPRIM
     Indication: Antibiotic prophylaxis
     Dosage: MON, WED, FRI
     Route: 048
     Dates: start: 20190329
  13. ZOMETA [Concomitant]
     Active Substance: ZOLEDRONIC ACID
     Indication: Plasma cell myeloma
     Route: 042
     Dates: start: 20170619
  14. LANSOPRAZOLE [Concomitant]
     Active Substance: LANSOPRAZOLE
     Indication: Chemotherapy
     Route: 048
     Dates: start: 20171115
  15. LANSOPRAZOLE [Concomitant]
     Active Substance: LANSOPRAZOLE
     Indication: Gastrooesophageal reflux prophylaxis
  16. SODIUM BICARBONATE [Concomitant]
     Active Substance: SODIUM BICARBONATE
     Indication: Scleral disorder
     Route: 047
     Dates: start: 20200217, end: 20200306
  17. SODIUM BICARBONATE [Concomitant]
     Active Substance: SODIUM BICARBONATE
     Indication: Lacrimation increased

REACTIONS (1)
  - Upper respiratory tract infection [Recovered/Resolved]

NARRATIVE: CASE EVENT DATE: 20200306
